FAERS Safety Report 5309522-2 (Version None)
Quarter: 2007Q2

REPORT INFORMATION
  Report Type: 
  Country: None (occurrence: None)
  Receive Date: 20070427
  Receipt Date: 20060523
  Transmission Date: 20071010
  Serious: No
  Sender: FDA-Public Use
  Company Number: US-GLAXOSMITHKLINE-A0606652A

PATIENT
  Sex: Female

DRUGS (6)
  1. DEXEDRINE [Suspect]
     Indication: ATTENTION DEFICIT/HYPERACTIVITY DISORDER
     Dosage: 5MG SEE DOSAGE TEXT
     Route: 048
     Dates: start: 19910101
  2. MEDCOR [Concomitant]
  3. UNKNOWN MEDICATION [Concomitant]
  4. WELLBUTRIN [Concomitant]
  5. MS CONTIN [Concomitant]
  6. DILAUDID [Concomitant]

REACTIONS (1)
  - THERAPEUTIC RESPONSE DECREASED [None]
